FAERS Safety Report 9482492 (Version 1)
Quarter: 2013Q3

REPORT INFORMATION
  Report Type: Spontaneous
  Country: US (occurrence: US)
  Receive Date: 20130828
  Receipt Date: 20130828
  Transmission Date: 20140515
  Serious: Yes (Other)
  Sender: FDA-Public Use
  Company Number: US-ROXANE LABORATORIES, INC.-2013-RO-01421RO

PATIENT
  Sex: Female

DRUGS (1)
  1. METHADONE [Suspect]
     Indication: CANCER PAIN

REACTIONS (1)
  - Hypoglycaemia [Recovered/Resolved]
